FAERS Safety Report 16949433 (Version 2)
Quarter: 2019Q4

REPORT INFORMATION
  Report Type: Spontaneous
  Country: US (occurrence: US)
  Receive Date: 20191023
  Receipt Date: 20191030
  Transmission Date: 20200122
  Serious: Yes (Other)
  Sender: FDA-Public Use
  Company Number: US-HORIZON-KRY-0892-2019

PATIENT
  Age: 63 Year
  Sex: Male

DRUGS (8)
  1. KRYSTEXXA [Suspect]
     Active Substance: PEGLOTICASE
     Indication: GOUT
     Dosage: EVERY 2 WEEKS FOR 4 YEARS
     Dates: start: 2013, end: 20190426
  2. HYDRALAZINE [Concomitant]
     Active Substance: HYDRALAZINE HYDROCHLORIDE
     Dosage: 100MG TID
  3. FELODIPINE. [Concomitant]
     Active Substance: FELODIPINE
     Dosage: 10MG ONCE A DAY
  4. SOLU-CORTEF [Concomitant]
     Active Substance: HYDROCORTISONE SODIUM SUCCINATE
     Dosage: AS PER MEDICATION
  5. METFORMIN ER [Concomitant]
     Active Substance: METFORMIN HYDROCHLORIDE
  6. METOPROLOL. [Concomitant]
     Active Substance: METOPROLOL
     Dosage: 100MG BID
  7. LOSARTAN. [Concomitant]
     Active Substance: LOSARTAN
     Dosage: 50MG ONCE A DAY
  8. DOXAZOSIN [Concomitant]
     Active Substance: DOXAZOSIN MESYLATE
     Dosage: 8MG ONCE AT BEDTIME

REACTIONS (5)
  - Blood uric acid increased [Not Recovered/Not Resolved]
  - Therapy cessation [Recovered/Resolved]
  - Gout [Not Recovered/Not Resolved]
  - Inappropriate schedule of product administration [Recovered/Resolved]
  - Hip arthroplasty [Recovered/Resolved]

NARRATIVE: CASE EVENT DATE: 2018
